FAERS Safety Report 11292725 (Version 1)
Quarter: 2015Q2

REPORT INFORMATION
  Report Type: Spontaneous
  Country: US (occurrence: None)
  Receive Date: 20150623
  Receipt Date: 20150623
  Transmission Date: 20150821
  Serious: Yes (Other)
  Sender: FDA-Public Use
  Company Number: RB-69738-2014

PATIENT
  Age: 19 Year
  Sex: Male

DRUGS (3)
  1. LAMOTRIGINE. [Concomitant]
     Active Substance: LAMOTRIGINE
  2. DEXTROMETHORPHAN/GUAIFENESIN 1200 MG (RB RECKITT BENCKISER)) [Suspect]
     Active Substance: DEXTROMETHORPHAN\GUAIFENESIN
     Indication: DRUG ABUSE
     Dosage: (8.4 G TOTAL ORAL)
     Route: 048
     Dates: start: 20141020
  3. ABILIFY [Concomitant]
     Active Substance: ARIPIPRAZOLE

REACTIONS (3)
  - Intentional overdose [None]
  - Vomiting [None]
  - Drug abuse [None]

NARRATIVE: CASE EVENT DATE: 20141020
